FAERS Safety Report 6069261-X (Version None)
Quarter: 2009Q1

REPORT INFORMATION
  Report Type: 
  Country: None (occurrence: None)
  Receive Date: 20090206
  Receipt Date: 20090128
  Transmission Date: 20090719
  Serious: Yes (Other)
  Sender: FDA-Public Use
  Company Number: PHEH2007US12073

PATIENT
  Sex: Female

DRUGS (1)
  1. ZOMETA [Suspect]
     Indication: MULTIPLE MYELOMA

REACTIONS (15)
  - ANHEDONIA [None]
  - ANXIETY [None]
  - DEFORMITY [None]
  - DENTAL CARIES [None]
  - DISCOMFORT [None]
  - DYSPEPSIA [None]
  - EMOTIONAL DISTRESS [None]
  - INJURY [None]
  - JOINT STIFFNESS [None]
  - LIFE EXPECTANCY SHORTENED [None]
  - MOUTH ULCERATION [None]
  - OSTEONECROSIS [None]
  - PAIN [None]
  - SENSITIVITY OF TEETH [None]
  - TOOTH REPAIR [None]
